FAERS Safety Report 12263340 (Version 1)
Quarter: 2016Q2

REPORT INFORMATION
  Report Type: Spontaneous
  Country: US (occurrence: None)
  Receive Date: 20160412
  Receipt Date: 20160412
  Transmission Date: 20160815
  Serious: Yes (Disabling)
  Sender: FDA-Public Use
  Company Number: None

PATIENT
  Age: 26 Year
  Sex: Female
  Weight: 58.97 kg

DRUGS (3)
  1. ONE A DAY WOMEN^S MULTI VITAMIN [Concomitant]
  2. MIRENA [Suspect]
     Active Substance: LEVONORGESTREL
     Indication: CONTRACEPTION
     Dosage: IMPLANTED 5 YEARS
     Route: 067
     Dates: start: 20140219, end: 20151127
  3. MELANTONIN [Concomitant]

REACTIONS (10)
  - Acne [None]
  - Insomnia [None]
  - Hypothyroidism [None]
  - Depression [None]
  - Anxiety [None]
  - Abdominal distension [None]
  - Vision blurred [None]
  - Alopecia [None]
  - Mood swings [None]
  - Fatigue [None]
